FAERS Safety Report 10765002 (Version 1)
Quarter: 2015Q1

REPORT INFORMATION
  Report Type: Spontaneous
  Country: US (occurrence: None)
  Receive Date: 20150204
  Receipt Date: 20150204
  Transmission Date: 20150721
  Serious: Yes (Hospitalization)
  Sender: FDA-Public Use
  Company Number: None

PATIENT
  Age: 62 Year
  Sex: Female
  Weight: 80.3 kg

DRUGS (4)
  1. MERCAPTOPURINE. [Suspect]
     Active Substance: MERCAPTOPURINE
     Dates: end: 20150122
  2. CYTARABINE. [Suspect]
     Active Substance: CYTARABINE
     Dates: end: 20141222
  3. METHOTREXATE [Suspect]
     Active Substance: METHOTREXATE
     Dates: end: 20141226
  4. CYCLOPHOSPHAMIDE. [Suspect]
     Active Substance: CYCLOPHOSPHAMIDE
     Dates: end: 20141212

REACTIONS (2)
  - Syncope [None]
  - Sepsis [None]

NARRATIVE: CASE EVENT DATE: 20141231
